FAERS Safety Report 24339891 (Version 1)
Quarter: 2024Q3

REPORT INFORMATION
  Report Type: Spontaneous
  Country: FI (occurrence: FI)
  Receive Date: 20240919
  Receipt Date: 20240919
  Transmission Date: 20241016
  Serious: Yes (Other)
  Sender: ORGANON
  Company Number: None

PATIENT
  Sex: Female

DRUGS (1)
  1. DESLORATADINE\PSEUDOEPHEDRINE [Suspect]
     Active Substance: DESLORATADINE\PSEUDOEPHEDRINE
     Indication: Oedema mucosal
     Dosage: 1 TABLET 2 TIMES A DAY (MODIFIED-RELEASE TABLET)
     Dates: start: 202409, end: 202409

REACTIONS (8)
  - Feeling drunk [Recovered/Resolved]
  - Vision blurred [Recovered/Resolved]
  - Cerebrovascular disorder [Recovered/Resolved]
  - Dysarthria [Recovered/Resolved]
  - Drug ineffective [Recovered/Resolved]
  - Visual impairment [Recovered/Resolved]
  - Coordination abnormal [Recovered/Resolved]
  - Dizziness [Recovered/Resolved]
